FAERS Safety Report 5372228-8 (Version None)
Quarter: 2007Q2

REPORT INFORMATION
  Report Type: 
  Country: None (occurrence: None)
  Receive Date: 20070627
  Receipt Date: 20070621
  Transmission Date: 20071010
  Serious: Yes (Death)
  Sender: FDA-Public Use
  Company Number: IT-ASTRAZENECA-2007SE03643

PATIENT
  Age: 29019 Day
  Sex: Male

DRUGS (5)
  1. CRESTOR [Suspect]
     Route: 048
     Dates: start: 20051101
  2. CARDIRENE [Concomitant]
     Route: 048
  3. LANSOX [Concomitant]
     Route: 048
  4. DILTIAZEM [Concomitant]
     Route: 048
  5. CONTRAMAL [Concomitant]
     Route: 048

REACTIONS (1)
  - MALIGNANT HEPATOBILIARY NEOPLASM [None]
